FAERS Safety Report 6061232-2 (Version None)
Quarter: 2009Q1

REPORT INFORMATION
  Report Type: 
  Country: None (occurrence: None)
  Receive Date: 20090202
  Receipt Date: 20090129
  Transmission Date: 20090719
  Serious: Yes (Life-Threatening, Hospitalization)
  Sender: FDA-Public Use
  Company Number: CH-ASTRAZENECA-2009PK00488

PATIENT
  Age: 83 Year
  Sex: Female

DRUGS (10)
  1. BELOC ZOK [Suspect]
     Indication: ATRIAL FIBRILLATION
     Route: 048
  2. BELOC ZOK [Suspect]
     Indication: ATRIAL FLUTTER
     Route: 048
  3. CORDARONE COMPRIMES [Suspect]
     Indication: ATRIAL FIBRILLATION
     Route: 048
  4. CORDARONE COMPRIMES [Suspect]
     Indication: ATRIAL FLUTTER
     Route: 048
  5. SINTROM [Concomitant]
     Indication: ATRIAL FIBRILLATION
     Route: 048
  6. SINTROM [Concomitant]
     Indication: ATRIAL FLUTTER
     Route: 048
  7. NORVASC [Concomitant]
     Indication: ESSENTIAL HYPERTENSION
     Route: 048
  8. ENATEC [Concomitant]
     Route: 048
  9. SORTIS [Concomitant]
     Route: 048
  10. FOSAMAX [Concomitant]
     Route: 048

REACTIONS (4)
  - ATRIOVENTRICULAR BLOCK COMPLETE [None]
  - BRADYCARDIA [None]
  - DRUG INTERACTION [None]
  - SYNCOPE [None]
